FAERS Safety Report 13299789 (Version 1)
Quarter: 2017Q1

REPORT INFORMATION
  Report Type: Spontaneous
  Country: US (occurrence: US)
  Receive Date: 20170306
  Receipt Date: 20170306
  Transmission Date: 20170428
  Serious: Yes (Hospitalization)
  Sender: FDA-Public Use
  Company Number: US-VERTEX PHARMACEUTICALS-2017-001219

PATIENT
  Sex: Female

DRUGS (3)
  1. ORKAMBI [Suspect]
     Active Substance: IVACAFTOR\LUMACAFTOR
     Indication: CYSTIC FIBROSIS
     Dosage: UNK, BID
     Route: 048
     Dates: start: 20150723
  2. XOLAIR [Concomitant]
     Active Substance: OMALIZUMAB
     Dosage: 375 MG/3 ML SUBCUTANEOUSLY EVERY 2 WEEKS
     Route: 058
  3. PULMOZYME [Concomitant]
     Active Substance: DORNASE ALFA
     Dosage: 2.5 UNK, QD
     Route: 055

REACTIONS (1)
  - Infection [Unknown]
